FAERS Safety Report 5498868-3 (Version None)
Quarter: 2007Q4

REPORT INFORMATION
  Report Type: 
  Country: None (occurrence: None)
  Receive Date: 20071026
  Receipt Date: 20070730
  Transmission Date: 20080405
  Serious: No
  Sender: FDA-Public Use
  Company Number: A0666874A

PATIENT
  Age: 46 Year
  Sex: Male

DRUGS (9)
  1. ADVAIR DISKUS 100/50 [Suspect]
     Indication: CHRONIC OBSTRUCTIVE PULMONARY DISEASE
     Route: 055
     Dates: start: 20070702
  2. METOPROLOL [Concomitant]
  3. ENALAPRIL MALEATE [Concomitant]
  4. OMEPRAZOLE [Concomitant]
  5. NAPROXEN [Concomitant]
  6. HYDROCODONE [Concomitant]
  7. LYRICA [Concomitant]
  8. ASCORBIC ACID [Concomitant]
  9. ASPIRIN [Concomitant]

REACTIONS (1)
  - DYSPNOEA EXERTIONAL [None]
